FAERS Safety Report 11367136 (Version 1)
Quarter: 2015Q3

REPORT INFORMATION
  Report Type: Spontaneous
  Country: US (occurrence: US)
  Receive Date: 20150811
  Receipt Date: 20150811
  Transmission Date: 20151125
  Serious: No
  Sender: FDA-Public Use
  Company Number: US-ELI_LILLY_AND_COMPANY-US201111002451

PATIENT
  Sex: Male

DRUGS (5)
  1. AXIRON [Suspect]
     Active Substance: TESTOSTERONE
     Dosage: 30 MG, QD
     Route: 061
  2. AXIRON [Suspect]
     Active Substance: TESTOSTERONE
     Indication: HYPOGONADISM
     Dosage: 60 MG, QD
     Route: 061
  3. AXIRON [Suspect]
     Active Substance: TESTOSTERONE
     Dosage: 30 MG, EVERY OTHER DAY
     Route: 061
  4. SYNTHROID [Concomitant]
     Active Substance: LEVOTHYROXINE SODIUM
  5. AXIRON [Suspect]
     Active Substance: TESTOSTERONE
     Dosage: 15 MG, QD
     Route: 061

REACTIONS (3)
  - Inappropriate schedule of drug administration [Unknown]
  - Blood testosterone increased [Recovered/Resolved]
  - Blood testosterone decreased [Unknown]
